FAERS Safety Report 20171789 (Version 2)
Quarter: 2022Q1

REPORT INFORMATION
  Report Type: Spontaneous
  Country: US (occurrence: US)
  Receive Date: 20211210
  Receipt Date: 20220301
  Transmission Date: 20220423
  Serious: No
  Sender: FDA-Public Use
  Company Number: US-SA-SAC20211206001186

PATIENT
  Age: 15 Year
  Sex: Female

DRUGS (1)
  1. DUPIXENT [Suspect]
     Active Substance: DUPILUMAB
     Indication: Dermatitis atopic
     Dosage: 200 MG, QOW
     Route: 058
     Dates: start: 202108

REACTIONS (6)
  - Viral infection [Unknown]
  - Product use issue [Unknown]
  - Acne [Unknown]
  - Urticaria [Unknown]
  - Blister [Unknown]
  - Pain of skin [Unknown]

NARRATIVE: CASE EVENT DATE: 20210101
